FAERS Safety Report 22005588 (Version 2)
Quarter: 2023Q1

REPORT INFORMATION
  Report Type: Report from Study
  Country: FR (occurrence: FR)
  Receive Date: 20230217
  Receipt Date: 20230227
  Transmission Date: 20230417
  Serious: Yes (Death)
  Sender: FDA-Public Use
  Company Number: FR-BAYER-2023P010389

PATIENT
  Sex: Male

DRUGS (2)
  1. RADIUM RA-223 DICHLORIDE [Suspect]
     Active Substance: RADIUM RA-223 DICHLORIDE
     Indication: Prostate cancer metastatic
  2. TRIPTORELIN [Concomitant]
     Active Substance: TRIPTORELIN
     Indication: Prostate cancer metastatic
     Dosage: 11.25 MG, Q3MON
     Route: 030
     Dates: start: 20210505, end: 20220805

REACTIONS (1)
  - Pathological fracture [Fatal]

NARRATIVE: CASE EVENT DATE: 20220517
